FAERS Safety Report 14620025 (Version 1)
Quarter: 2018Q1

REPORT INFORMATION
  Report Type: Spontaneous
  Country: FI (occurrence: FI)
  Receive Date: 20180309
  Receipt Date: 20180309
  Transmission Date: 20180509
  Serious: Yes (Other)
  Sender: FDA-Public Use
  Company Number: FI-SA-2018SA053346

PATIENT
  Age: 51 Year
  Sex: Female

DRUGS (13)
  1. ZOMETA [Concomitant]
     Active Substance: ZOLEDRONIC ACID
     Indication: HER-2 POSITIVE BREAST CANCER
     Route: 065
     Dates: start: 20101101, end: 20130801
  2. HERCEPTIN [Suspect]
     Active Substance: TRASTUZUMAB
     Indication: HER-2 POSITIVE BREAST CANCER
     Route: 065
     Dates: start: 20141101, end: 20141101
  3. HERCEPTIN [Suspect]
     Active Substance: TRASTUZUMAB
     Indication: HER-2 POSITIVE BREAST CANCER
     Route: 065
     Dates: start: 20101101, end: 20101101
  4. HERCEPTIN [Suspect]
     Active Substance: TRASTUZUMAB
     Indication: HER-2 POSITIVE BREAST CANCER
     Route: 065
     Dates: start: 20170301, end: 20170301
  5. HERCEPTIN [Suspect]
     Active Substance: TRASTUZUMAB
     Indication: HER-2 POSITIVE BREAST CANCER
     Route: 065
     Dates: start: 20100101, end: 20100101
  6. KADCYLA [Suspect]
     Active Substance: ADO-TRASTUZUMAB EMTANSINE
     Indication: HER-2 POSITIVE BREAST CANCER
     Route: 042
     Dates: start: 20150101, end: 20170301
  7. DOCETAXEL. [Suspect]
     Active Substance: DOCETAXEL
     Indication: HER-2 POSITIVE BREAST CANCER
     Route: 051
     Dates: start: 20141101, end: 20141101
  8. DOCETAXEL. [Suspect]
     Active Substance: DOCETAXEL
     Indication: HER-2 POSITIVE BREAST CANCER
     Route: 051
     Dates: start: 20150301, end: 20150301
  9. DOCETAXEL. [Suspect]
     Active Substance: DOCETAXEL
     Indication: HER-2 POSITIVE BREAST CANCER
     Route: 051
     Dates: start: 20100101, end: 20100101
  10. HERCEPTIN [Suspect]
     Active Substance: TRASTUZUMAB
     Indication: HER-2 POSITIVE BREAST CANCER
     Route: 065
     Dates: start: 20150301, end: 20150301
  11. XGEVA [Concomitant]
     Active Substance: DENOSUMAB
     Indication: HER-2 POSITIVE BREAST CANCER
     Route: 065
     Dates: start: 20141101, end: 20150301
  12. XGEVA [Concomitant]
     Active Substance: DENOSUMAB
     Indication: HER-2 POSITIVE BREAST CANCER
     Route: 065
     Dates: start: 20130801
  13. ZOMETA [Concomitant]
     Active Substance: ZOLEDRONIC ACID
     Indication: HER-2 POSITIVE BREAST CANCER
     Route: 065
     Dates: start: 20100101, end: 20100101

REACTIONS (13)
  - Osteoarthritis [Recovered/Resolved]
  - Erysipelas [Unknown]
  - Headache [Recovered/Resolved]
  - Thrombocytopenia [Unknown]
  - Muscle spasms [Unknown]
  - Septic shock [Unknown]
  - Haemangioma [Unknown]
  - Epistaxis [Unknown]
  - Transaminases increased [Recovering/Resolving]
  - Telangiectasia [Unknown]
  - Neuropathy peripheral [Recovered/Resolved]
  - Muscular weakness [Unknown]
  - Fatigue [Recovered/Resolved]

NARRATIVE: CASE EVENT DATE: 20130101
